FAERS Safety Report 6096072-1 (Version None)
Quarter: 2009Q1

REPORT INFORMATION
  Report Type: 
  Country: None (occurrence: None)
  Receive Date: 20090227
  Receipt Date: 20080826
  Transmission Date: 20090719
  Serious: No
  Sender: FDA-Public Use
  Company Number: A0744469A

PATIENT
  Age: 60 Year
  Sex: Male

DRUGS (2)
  1. LAMICTAL [Suspect]
     Indication: DEPRESSION
     Dosage: 200MG PER DAY
     Route: 048
     Dates: start: 20070101
  2. ZANTAC [Concomitant]

REACTIONS (2)
  - ALOPECIA [None]
  - INITIAL INSOMNIA [None]
